FAERS Safety Report 12471333 (Version 2)
Quarter: 2016Q2

REPORT INFORMATION
  Report Type: Spontaneous
  Country: US (occurrence: US)
  Receive Date: 20160616
  Receipt Date: 20160630
  Transmission Date: 20160815
  Serious: No
  Sender: FDA-Public Use
  Company Number: US-PFIZER INC-2016278319

PATIENT
  Age: 35 Year
  Sex: Female
  Weight: 98 kg

DRUGS (19)
  1. DICLOFENAC POTASSIUM. [Concomitant]
     Active Substance: DICLOFENAC POTASSIUM
     Dosage: 1 DF, AS NEEDED (50 TABLET, 1 TABLET TWICE A DAY AS NEEDED)
  2. CAMBIA [Concomitant]
     Active Substance: DICLOFENAC POTASSIUM
     Dosage: 50 MG, AS NEEDED (1 PACKET ON AN EMPTY STOMACH ONE TIME ONCE A DAY AS NEEDED)
     Route: 048
     Dates: end: 20160515
  3. GABAPENTIN. [Concomitant]
     Active Substance: GABAPENTIN
     Indication: MIGRAINE
     Dosage: 900 MG, 3X/DAY
  4. VENLAFAXINE HCL [Suspect]
     Active Substance: VENLAFAXINE HYDROCHLORIDE
     Indication: MIGRAINE
     Dosage: 75 MG, 2X/DAY (1 TABLET WITH FOOD TWICE A DAY)
  5. DIAZEPAM. [Concomitant]
     Active Substance: DIAZEPAM
     Dosage: 5 MG, UNK
  6. ADVIL [Concomitant]
     Active Substance: IBUPROFEN
     Dosage: 1 DF, AS NEEDED (1 TABLET AS NEEDED)
  7. PEPCID [Concomitant]
     Active Substance: FAMOTIDINE
     Dosage: 20 MG, 1X/DAY (1 TABLET AT BEDTIME ONCE A DAY)
     Route: 048
  8. LYRICA [Suspect]
     Active Substance: PREGABALIN
     Indication: MIGRAINE
     Dosage: 100 MG, 3X/DAY
     Route: 048
  9. DIAZEPAM. [Concomitant]
     Active Substance: DIAZEPAM
     Dosage: 1 DF, AS NEEDED (5 TABLET, TAKE ONE TABLET BY MOUTH TWICE A DAY AS NEEDED)
     Route: 048
  10. SUMAVEL DOSEPRO [Concomitant]
     Active Substance: SUMATRIPTAN SUCCINATE
     Dosage: 0.5 ML, AS NEEDED (4MG/0.5ML SOLUTION-JETINJECTOR 0.5 ML AS NEEDED TWICE A DAY)
     Route: 058
  11. ZOMIG [Concomitant]
     Active Substance: ZOLMITRIPTAN
     Dosage: UNK UNK, AS NEEDED (5MG/SPRAY 5MG IN ONE NOSTRIL X1, MAX 10MG/24H AS NEEDED)
     Route: 045
  12. ZOFRAN [Concomitant]
     Active Substance: ONDANSETRON HYDROCHLORIDE
     Indication: NAUSEA
     Dosage: 1 DF, AS NEEDED (4 TABLET DISPERSIBLE DISSOLVE ONE TABLET BY MOUTH EVERY 6 HOURS AS NEEDED)
     Route: 048
  13. ZOFRAN [Concomitant]
     Active Substance: ONDANSETRON HYDROCHLORIDE
     Indication: VOMITING
  14. TYLENOL [Concomitant]
     Active Substance: ACETAMINOPHEN
     Dosage: 1 DF, AS NEEDED (1 TABLET AS NEEDED)
  15. PREVACID [Concomitant]
     Active Substance: LANSOPRAZOLE
     Dosage: 15 MG, 1X/DAY
  16. TOPIRAMATE. [Concomitant]
     Active Substance: TOPIRAMATE
     Dosage: 75 MG, DAILY [25 MG QAM AND 50 MG QHS FOR THE PAST 8 MONTHS
  17. VENLAFAXINE HCL [Suspect]
     Active Substance: VENLAFAXINE HYDROCHLORIDE
     Indication: ANXIETY
     Dosage: 37.5 MG, UNK
  18. PHENERGAN [Concomitant]
     Active Substance: PROMETHAZINE HYDROCHLORIDE
     Dosage: 12.5 MG, AS NEEDED (EVERY 6 HRS, PRN)
     Route: 054
  19. GABAPENTIN. [Concomitant]
     Active Substance: GABAPENTIN
     Indication: NEURALGIA

REACTIONS (34)
  - Cardiac disorder [Unknown]
  - Nausea [Unknown]
  - Insomnia [Unknown]
  - Fall [Unknown]
  - Pain [Unknown]
  - Irritability [Unknown]
  - Condition aggravated [Unknown]
  - Anxiety [Unknown]
  - Contusion [Unknown]
  - Coordination abnormal [Unknown]
  - Memory impairment [Unknown]
  - Dizziness [Unknown]
  - Migraine with aura [Unknown]
  - Photophobia [Unknown]
  - Vomiting [Unknown]
  - Hyperacusis [Unknown]
  - Product use issue [Unknown]
  - Fatigue [Unknown]
  - Diplopia [Unknown]
  - Disturbance in attention [Unknown]
  - Aggression [Unknown]
  - Menstrual disorder [Unknown]
  - Stress [Unknown]
  - Feeling abnormal [Unknown]
  - Quality of life decreased [Unknown]
  - Vision blurred [Unknown]
  - Diarrhoea [Unknown]
  - Hyperhidrosis [Unknown]
  - Depression [Unknown]
  - Mood swings [Unknown]
  - Tremor [Unknown]
  - Dyspepsia [Unknown]
  - Allodynia [Unknown]
  - Fear [Unknown]

NARRATIVE: CASE EVENT DATE: 201512
